FAERS Safety Report 7440965-7 (Version None)
Quarter: 2011Q2

REPORT INFORMATION
  Report Type: 
  Country: None (occurrence: None)
  Receive Date: 20110427
  Receipt Date: 20110419
  Transmission Date: 20111010
  Serious: Yes (Hospitalization)
  Sender: FDA-Public Use
  Company Number: FR-BAYER-2011-034479

PATIENT
  Age: 17 Year
  Sex: Female

DRUGS (1)
  1. GADOVIST [Suspect]
     Indication: NUCLEAR MAGNETIC RESONANCE IMAGING
     Dosage: 5 ML, ONCE
     Route: 042
     Dates: start: 20110323, end: 20110323

REACTIONS (4)
  - RASH [None]
  - DYSPHAGIA [None]
  - DYSPNOEA [None]
  - OCULAR HYPERAEMIA [None]
